FAERS Safety Report 7231339-2 (Version None)
Quarter: 2011Q1

REPORT INFORMATION
  Report Type: 
  Country: None (occurrence: None)
  Receive Date: 20110118
  Receipt Date: 20110106
  Transmission Date: 20110831
  Serious: Yes (Other)
  Sender: FDA-Public Use
  Company Number: PHHY2011CA01426

PATIENT
  Sex: Female

DRUGS (1)
  1. ZOMETA [Suspect]
     Indication: BREAST CANCER
     Dosage: 4 MG EVERY 6 MONTHS
     Route: 042
     Dates: start: 20100705

REACTIONS (6)
  - BREAST INFECTION [None]
  - WOUND [None]
  - MYALGIA [None]
  - CONCOMITANT DISEASE AGGRAVATED [None]
  - PURULENT DISCHARGE [None]
  - ARTHRALGIA [None]
